FAERS Safety Report 4953078-0 (Version None)
Quarter: 2006Q1

REPORT INFORMATION
  Report Type: 
  Country: None (occurrence: None)
  Receive Date: 20060324
  Receipt Date: 20060316
  Transmission Date: 20060701
  Serious: Yes (Other)
  Sender: FDA-Public Use
  Company Number: GB-GILEAD-2006-0009333

PATIENT
  Sex: Male

DRUGS (2)
  1. TRUVADA [Suspect]
     Indication: HIV INFECTION
     Dates: start: 20051201, end: 20060101
  2. NEVIRAPINE [Concomitant]
     Indication: HIV INFECTION

REACTIONS (3)
  - BLOOD PARATHYROID HORMONE INCREASED [None]
  - BONE PAIN [None]
  - VITAMIN D DECREASED [None]
